FAERS Safety Report 8015076-2 (Version None)
Quarter: 2011Q4

REPORT INFORMATION
  Report Type: 
  Country: None (occurrence: None)
  Receive Date: 20111230
  Receipt Date: 20111220
  Transmission Date: 20120403
  Serious: No
  Sender: FDA-Public Use
  Company Number: US-BIOGENIDEC-2011BI048084

PATIENT
  Sex: Female

DRUGS (1)
  1. TYSABRI [Suspect]
     Indication: MULTIPLE SCLEROSIS
     Route: 042
     Dates: start: 20101027, end: 20110101

REACTIONS (6)
  - APHONIA [None]
  - RALES [None]
  - GAIT DISTURBANCE [None]
  - INFLUENZA [None]
  - LARYNGITIS [None]
  - GASTROENTERITIS VIRAL [None]
